FAERS Safety Report 6708482-7 (Version None)
Quarter: 2010Q2

REPORT INFORMATION
  Report Type: 
  Country: None (occurrence: None)
  Receive Date: 20100503
  Receipt Date: 20090727
  Transmission Date: 20101027
  Serious: No
  Sender: FDA-Public Use
  Company Number: US-ASTRAZENECA-2009SE06091

PATIENT
  Sex: Female

DRUGS (3)
  1. NEXIUM [Suspect]
     Route: 048
     Dates: start: 20090703, end: 20090706
  2. FOSAMAX [Concomitant]
  3. SYNTHROID [Concomitant]

REACTIONS (4)
  - DIARRHOEA [None]
  - ILL-DEFINED DISORDER [None]
  - MUSCLE SPASMS [None]
  - NAUSEA [None]
